FAERS Safety Report 8506564-0 (Version None)
Quarter: 2012Q3

REPORT INFORMATION
  Report Type: 
  Country: None (occurrence: None)
  Receive Date: 20120712
  Receipt Date: 20120702
  Transmission Date: 20120928
  Serious: Yes (Hospitalization, Other)
  Sender: FDA-Public Use
  Company Number: JP-ABBOTT-12P-087-0919885-00

PATIENT
  Sex: Female
  Weight: 43.9 kg

DRUGS (9)
  1. CLARITHROMYCIN [Suspect]
     Indication: BRONCHITIS
  2. MINOCYCLINE HYDROCHLORIDE [Suspect]
     Indication: BRONCHITIS
     Route: 041
     Dates: start: 20120312, end: 20120316
  3. BROCIN [Suspect]
     Indication: BRONCHITIS
     Dates: start: 20120305, end: 20120321
  4. FLOMAX [Suspect]
     Indication: PRODUCT USED FOR UNKNOWN INDICATION
     Dates: start: 20120305, end: 20120321
  5. HUSCODE TAB [Suspect]
     Indication: NASOPHARYNGITIS
  6. AMBROXOL HYDROCHLORIDE [Suspect]
     Indication: BRONCHITIS
     Dates: start: 20120305, end: 20120321
  7. HUSCODE TAB [Suspect]
     Indication: BRONCHITIS
     Route: 048
     Dates: start: 20120305, end: 20120321
  8. NEOMALLERMIN [Suspect]
     Indication: BRONCHITIS
     Dates: start: 20120305, end: 20120321
  9. PRANOPROFEN [Suspect]
     Indication: BRONCHITIS
     Route: 048
     Dates: start: 20120305, end: 20120321

REACTIONS (10)
  - PSYCHIATRIC SYMPTOM [None]
  - COUGH [None]
  - COMMUNICATION DISORDER [None]
  - ADVERSE REACTION [None]
  - INSOMNIA [None]
  - ENCEPHALITIS [None]
  - ENCEPHALOPATHY [None]
  - EUPHORIC MOOD [None]
  - LOGORRHOEA [None]
  - MYCOPLASMA INFECTION [None]
